FAERS Safety Report 24793195 (Version 2)
Quarter: 2025Q3

REPORT INFORMATION
  Report Type: Spontaneous
  Country: US (occurrence: US)
  Receive Date: 20241231
  Receipt Date: 20250925
  Transmission Date: 20251020
  Serious: Yes (Other)
  Sender: SUNOVION
  Company Number: US-SMPA-2024SPA006822

PATIENT
  Age: 56 Year
  Sex: Male

DRUGS (5)
  1. ORGOVYX [Suspect]
     Active Substance: RELUGOLIX
     Indication: Prostate cancer
     Dosage: 360 MG, SINGLE
     Route: 048
     Dates: start: 20231005, end: 20231005
  2. ORGOVYX [Suspect]
     Active Substance: RELUGOLIX
     Dosage: 120 MG, QD
     Route: 048
     Dates: start: 20231006
  3. ABIRATERONE [Concomitant]
     Active Substance: ABIRATERONE
  4. PREDNISONE [Concomitant]
     Active Substance: PREDNISONE
  5. COLLAGEN [Concomitant]
     Active Substance: COLLAGEN

REACTIONS (3)
  - Central serous chorioretinopathy [Unknown]
  - Dry skin [Unknown]
  - Energy increased [Unknown]
